FAERS Safety Report 9557023 (Version 2)
Quarter: 2013Q4

REPORT INFORMATION
  Report Type: Spontaneous
  Country: IT (occurrence: IT)
  Receive Date: 20130926
  Receipt Date: 20131018
  Transmission Date: 20140711
  Serious: Yes (Hospitalization, Other)
  Sender: FDA-Public Use
  Company Number: IT-ASTRAZENECA-2013SE70958

PATIENT
  Age: 20652 Day
  Sex: Male

DRUGS (7)
  1. CRESTOR [Suspect]
     Indication: HYPERCHOLESTEROLAEMIA
     Route: 048
  2. ISENTRESS [Interacting]
     Indication: ANTIRETROVIRAL THERAPY
     Route: 048
     Dates: start: 20100201, end: 20130822
  3. REYATAZ [Interacting]
     Indication: ANTIRETROVIRAL THERAPY
     Route: 048
     Dates: start: 20100201, end: 20130822
  4. NORVIR [Interacting]
     Indication: ANTIRETROVIRAL THERAPY
     Route: 048
     Dates: start: 20100101, end: 20130822
  5. MEROPENEM HIKMA [Interacting]
     Indication: ANTIBIOTIC THERAPY
     Dosage: 1G POWDER FOR SOLUTION FOR INFUSION OR FOR INJECTION, 3000 MG DAILY
     Route: 042
     Dates: start: 20130809, end: 20130824
  6. PANTORC [Concomitant]
     Indication: PROPHYLAXIS AGAINST GASTROINTESTINAL ULCER
     Dosage: 1 BOTTLE LYOPHILIZED POWDER+SOLVENT FOR ENDOVENOUS INFUSION, 40 MG DAILY
     Route: 042
     Dates: start: 20130809, end: 20130820
  7. TARGOSID [Concomitant]
     Indication: ANTIBIOTIC THERAPY
     Dosage: 400MG/3ML POWDER+SOLVENT FOR SOLUTION FOR INJECTION, 800 MG DAILY
     Route: 042
     Dates: start: 20130809, end: 20130824

REACTIONS (2)
  - Drug interaction [Unknown]
  - Rhabdomyolysis [Recovered/Resolved]
